FAERS Safety Report 5421502-5 (Version None)
Quarter: 2007Q3

REPORT INFORMATION
  Report Type: 
  Country: None (occurrence: None)
  Receive Date: 20070817
  Receipt Date: 20070803
  Transmission Date: 20080115
  Serious: Yes (Life-Threatening, Hospitalization, Other)
  Sender: FDA-Public Use
  Company Number: E2B_00010997

PATIENT
  Age: 58 Year
  Sex: Female

DRUGS (10)
  1. METFORMIN HCL [Suspect]
     Indication: DRUG USE FOR UNKNOWN INDICATION
     Dosage: ORAL
     Route: 048
     Dates: start: 20070706
  2. CITALOPRAM HYDROBROMIDE [Suspect]
     Indication: DRUG USE FOR UNKNOWN INDICATION
     Dosage: ORAL
     Route: 048
     Dates: start: 20070706
  3. LEVOTHYROXINE SODIUM [Suspect]
     Indication: DRUG USE FOR UNKNOWN INDICATION
     Dosage: MAXIMUM 10 TABLETS ORAL
     Route: 048
     Dates: start: 20070706
  4. MELPERONE HYDROCHLORIDE(25 MG, TABLET) (MELPERONE HYDROCHLORIDE) [Suspect]
     Indication: DRUG USE FOR UNKNOWN INDICATION
     Dosage: MAXIMUM 50 TABLETS ORAL
     Route: 048
     Dates: start: 20070706
  5. MIRTAZAPINE [Suspect]
     Indication: DRUG USE FOR UNKNOWN INDICATION
     Dosage: MAXIMUM 20 TABLETS ORAL
     Route: 048
     Dates: start: 20070706
  6. ZOPICLONE(7,5 MG, TABLET) (ZOPICLONE) [Suspect]
     Indication: DRUG USE FOR UNKNOWN INDICATION
     Dosage: MAXIMUM 20 TABLETS ORAL
     Route: 048
     Dates: start: 20070706
  7. ABILIFY TABS 5 MG(5 MG, TABLET) (ARIPIPRAZOLE) [Suspect]
     Indication: DRUG USE FOR UNKNOWN INDICATION
     Dosage: MAXIMUM OF 49 TABLETS TAKEN ORAL
     Route: 048
     Dates: start: 20070706
  8. AXURA(10 MG, TABLET) (MEMANTINE HYDROCHLORIDE) [Suspect]
     Indication: DRUG USE FOR UNKNOWN INDICATION
     Dosage: MAXIMUM OF 100 TABLETS ORAL
     Route: 048
     Dates: start: 20070706
  9. BAYOTENSIN(TABLET) (NITRENDIPINE) [Suspect]
     Indication: DRUG USE FOR UNKNOWN INDICATION
     Dosage: MAXIMUM OF 1 TABLET (1 DOSAGE FORMS) ORAL
     Route: 048
     Dates: start: 20070706
  10. TAVOR(0,5 MG, TABLET) (LORAZEPAM) [Suspect]
     Indication: DRUG USE FOR UNKNOWN INDICATION
     Dosage: MAXIMUM 50 TABLETS ORAL
     Route: 048
     Dates: start: 20070706

REACTIONS (3)
  - COMA [None]
  - MULTIPLE DRUG OVERDOSE [None]
  - SUICIDE ATTEMPT [None]
